FAERS Safety Report 6782838-9 (Version None)
Quarter: 2010Q2

REPORT INFORMATION
  Report Type: 
  Country: None (occurrence: None)
  Receive Date: 20100621
  Receipt Date: 20100611
  Transmission Date: 20101027
  Serious: Yes (Other)
  Sender: FDA-Public Use
  Company Number: AU-AMGEN-QUU360752

PATIENT
  Sex: Female

DRUGS (9)
  1. ARANESP [Suspect]
     Indication: RENAL FAILURE CHRONIC
     Route: 058
     Dates: start: 20040407
  2. CYCLOSPORINE [Concomitant]
     Dates: start: 20030709
  3. MYCOPHENOLIC ACID [Concomitant]
     Dates: start: 20030709
  4. PREDNISOLONE [Concomitant]
     Dates: start: 20030709
  5. CALCITRIOL [Concomitant]
     Dates: start: 20010115
  6. SEVELAMER [Concomitant]
     Dates: start: 20080825, end: 20090518
  7. RAMIPRIL [Concomitant]
     Dates: start: 20030619
  8. OXAZEPAM [Concomitant]
     Dates: start: 20060807
  9. CALTRATE [Concomitant]
     Dates: start: 20060529

REACTIONS (4)
  - APLASIA PURE RED CELL [None]
  - CHRONIC ALLOGRAFT NEPHROPATHY [None]
  - HAEMOGLOBIN ABNORMAL [None]
  - THERAPEUTIC RESPONSE DECREASED [None]
